FAERS Safety Report 15624545 (Version 2)
Quarter: 2019Q3

REPORT INFORMATION
  Report Type: Report from Study
  Country: US (occurrence: US)
  Receive Date: 20181116
  Receipt Date: 20190924
  Transmission Date: 20191004
  Serious: Yes (Hospitalization, Other)
  Sender: FDA-Public Use
  Company Number: US-ASTELLAS-2018US044445

PATIENT
  Sex: Male

DRUGS (2)
  1. ENZALUTAMIDE [Suspect]
     Active Substance: ENZALUTAMIDE
     Route: 048
     Dates: start: 20180713
  2. ENZALUTAMIDE [Suspect]
     Active Substance: ENZALUTAMIDE
     Indication: PROSTATE CANCER
     Route: 065

REACTIONS (6)
  - Sleep disorder [Not Recovered/Not Resolved]
  - Back pain [Unknown]
  - Asthenia [Not Recovered/Not Resolved]
  - Gastrointestinal haemorrhage [Unknown]
  - Underdose [Unknown]
  - Dry skin [Unknown]
